FAERS Safety Report 22117672 (Version 1)
Quarter: 2023Q1

REPORT INFORMATION
  Report Type: Spontaneous
  Country: US (occurrence: US)
  Receive Date: 20230321
  Receipt Date: 20230321
  Transmission Date: 20230418
  Serious: Yes (Other)
  Sender: FDA-Public Use
  Company Number: US-ROCHE-2621582

PATIENT
  Age: 67 Year
  Sex: Female
  Weight: 68.099 kg

DRUGS (24)
  1. CLONAZEPAM [Suspect]
     Active Substance: CLONAZEPAM
     Indication: Depression
     Dosage: AT BEDTIME
     Route: 048
     Dates: start: 20170118
  2. RITUXAN [Suspect]
     Active Substance: RITUXIMAB
     Indication: Myasthenia gravis
     Dosage: 2 DOSES PER MONTH, SEPARATED BY 2 WEEKS
     Route: 042
     Dates: end: 20200205
  3. RITUXAN [Suspect]
     Active Substance: RITUXIMAB
     Indication: Myasthenia gravis
     Dosage: INFUSE 1000MG ON DAY(S) 1 AND DAY(S) 15 EVERY 4-6
     Route: 042
  4. RITUXAN [Suspect]
     Active Substance: RITUXIMAB
     Indication: Myasthenia gravis
     Dosage: INFUSE 1000MG ON DAY(S) 1 AND DAY(S) 15 EVERY 4-6
     Route: 042
  5. RITUXAN [Suspect]
     Active Substance: RITUXIMAB
     Indication: Myasthenia gravis
     Dosage: INFUSE 1000 MG ON DAY(S) 1 AND DAY(S) 15 EVERY 14-15 WEEKS
     Route: 042
  6. MESTINON [Suspect]
     Active Substance: PYRIDOSTIGMINE BROMIDE
     Indication: Myasthenia gravis
     Dosage: ONE TABLET IN THE MORNING, ONE TABLET AT NIGHT
     Route: 048
  7. PREDNISONE [Suspect]
     Active Substance: PREDNISONE
     Indication: Myasthenia gravis
  8. IMURAN [Suspect]
     Active Substance: AZATHIOPRINE
  9. NORVASC [Concomitant]
     Active Substance: AMLODIPINE BESYLATE
     Indication: Hypertension
     Dosage: AT BEDTIME
     Route: 048
  10. AIMOVIG [Concomitant]
     Active Substance: ERENUMAB-AOOE
     Indication: Migraine
     Dates: start: 20181105
  11. ASPIRIN [Concomitant]
     Active Substance: ASPIRIN
     Dosage: IN THE MORNING
     Route: 048
  12. LEVOTHYROXINE [Concomitant]
     Active Substance: LEVOTHYROXINE
     Route: 048
     Dates: start: 20190515
  13. LISINOPRIL [Concomitant]
     Active Substance: LISINOPRIL
     Indication: Hypertension
     Dosage: IN THE MORNING
     Route: 048
     Dates: start: 20121201
  14. CLONIDINE [Concomitant]
     Active Substance: CLONIDINE
     Dosage: AS NEEDED FOR SYSTOLIC BLOOD PRESSURE }150
     Route: 048
     Dates: start: 20161221
  15. VITAMIN B12 [Concomitant]
     Active Substance: CYANOCOBALAMIN
     Route: 060
     Dates: start: 20130622
  16. METOPROLOL TARTRATE [Concomitant]
     Active Substance: METOPROLOL TARTRATE
     Dosage: 1 TABLET IN THE MORNING,1 TABLET IN THE EVENING
     Route: 048
     Dates: start: 20180507
  17. VITAMIN D3 [Concomitant]
     Active Substance: CHOLECALCIFEROL
     Dosage: 1 CAPSULE IN THE MORNING,1 CAPSULE IN THE EVENING
     Route: 048
     Dates: start: 20130622
  18. ZETIA [Concomitant]
     Active Substance: EZETIMIBE
     Route: 048
     Dates: start: 20140205
  19. TOPIRAMATE [Concomitant]
     Active Substance: TOPIRAMATE
     Indication: Migraine
     Route: 048
     Dates: start: 20141223
  20. PLAVIX [Concomitant]
     Active Substance: CLOPIDOGREL BISULFATE
     Dosage: IN THE MORNING
     Route: 048
     Dates: start: 20161221
  21. ZOLOFT [Concomitant]
     Active Substance: SERTRALINE HYDROCHLORIDE
     Indication: Depression
     Dosage: AT BEDTIME
     Route: 048
     Dates: start: 20170117
  22. AMITRIPTYLINE [Concomitant]
     Active Substance: AMITRIPTYLINE
     Indication: Migraine
     Dosage: AT BEDTIME
     Route: 048
     Dates: start: 20161221
  23. PROLENSA [Concomitant]
     Active Substance: BROMFENAC SODIUM
     Dosage: ONE DROP IN RIGHT EYE
     Route: 047
     Dates: start: 20180122
  24. IMODIUM [Concomitant]
     Active Substance: LOPERAMIDE HYDROCHLORIDE
     Indication: Diarrhoea

REACTIONS (25)
  - Loss of consciousness [Unknown]
  - Ill-defined disorder [Recovered/Resolved]
  - Fatigue [Not Recovered/Not Resolved]
  - Mass [Recovered/Resolved]
  - Dyspnoea [Recovered/Resolved]
  - Dysphagia [Recovered/Resolved]
  - Eye disorder [Recovered/Resolved]
  - Alopecia [Recovering/Resolving]
  - Mental impairment [Not Recovered/Not Resolved]
  - Diarrhoea [Recovered/Resolved]
  - Mass [Not Recovered/Not Resolved]
  - Diplopia [Unknown]
  - Eyelid ptosis [Recovered/Resolved]
  - Pharyngeal disorder [Recovered/Resolved]
  - Foreign body in throat [Recovered/Resolved]
  - Malaise [Unknown]
  - Tremor [Unknown]
  - Chest pain [Unknown]
  - Throat tightness [Unknown]
  - Vomiting [Unknown]
  - Hyperhidrosis [Unknown]
  - Fall [Unknown]
  - Product use in unapproved indication [Unknown]
  - Pharyngeal disorder [Unknown]
  - White blood cell count decreased [Unknown]

NARRATIVE: CASE EVENT DATE: 20200601
